FAERS Safety Report 17220798 (Version 1)
Quarter: 2019Q4

REPORT INFORMATION
  Report Type: Report from Study
  Country: US (occurrence: US)
  Receive Date: 20191231
  Receipt Date: 20191231
  Transmission Date: 20200122
  Serious: Yes (Hospitalization, Other)
  Sender: FDA-Public Use
  Company Number: US-GILEAD-2019-0445001

PATIENT
  Age: 55 Year
  Sex: Female

DRUGS (13)
  1. KALYDECO [Concomitant]
     Active Substance: IVACAFTOR
  2. PANCREAZE [Concomitant]
     Active Substance: PANCRELIPASE AMYLASE\PANCRELIPASE LIPASE\PANCRELIPASE PROTEASE
  3. TOPAMAX [Concomitant]
     Active Substance: TOPIRAMATE
  4. MUCINEX [Concomitant]
     Active Substance: GUAIFENESIN
  5. TRAMADOL. [Concomitant]
     Active Substance: TRAMADOL
  6. SODIUM CHLORIDE. [Concomitant]
     Active Substance: SODIUM CHLORIDE
  7. AZTREONAM LYSINE [Suspect]
     Active Substance: AZTREONAM LYSINE
     Indication: CYSTIC FIBROSIS LUNG
     Dosage: 75 MG, TID 28 DAYS ON/OFF
     Route: 055
     Dates: start: 20131227
  8. LORATADINE. [Concomitant]
     Active Substance: LORATADINE
  9. URSODIOL. [Concomitant]
     Active Substance: URSODIOL
  10. ZOLOFT [Concomitant]
     Active Substance: SERTRALINE HYDROCHLORIDE
  11. VITAMIN D3 [Concomitant]
     Active Substance: CHOLECALCIFEROL
  12. CALCIUM CITRATE + D3 [Concomitant]
  13. PARI [Concomitant]

REACTIONS (3)
  - Thrombosis [Unknown]
  - Procedural complication [Unknown]
  - Hypoaesthesia [Unknown]

NARRATIVE: CASE EVENT DATE: 20191208
